FAERS Safety Report 8708274 (Version 2)
Quarter: 2013Q2

REPORT INFORMATION
  Report Type: Spontaneous
  Country: FR (occurrence: FR)
  Receive Date: 20120806
  Receipt Date: 20130404
  Transmission Date: 20140414
  Serious: Yes (Hospitalization)
  Sender: FDA-Public Use
  Company Number: FR-JNJFOC-20120800829

PATIENT
  Age: 47 Year
  Sex: Male

DRUGS (8)
  1. IXPRIM [Suspect]
     Indication: PAIN
     Route: 048
     Dates: end: 20120701
  2. COROTROPE [Suspect]
     Indication: EJECTION FRACTION DECREASED
     Route: 042
     Dates: start: 20120606, end: 20120701
  3. IMOVANE [Suspect]
     Indication: PRODUCT USED FOR UNKNOWN INDICATION
     Route: 048
     Dates: end: 20120701
  4. DOBUTAMINE [Suspect]
     Indication: EJECTION FRACTION DECREASED
     Route: 065
     Dates: start: 20120606
  5. ALDACTONE [Suspect]
     Indication: PRODUCT USED FOR UNKNOWN INDICATION
     Route: 048
     Dates: end: 20120701
  6. PROCORALAN [Suspect]
     Indication: PRODUCT USED FOR UNKNOWN INDICATION
     Route: 048
     Dates: end: 20120701
  7. CARDENSIEL [Suspect]
     Indication: PRODUCT USED FOR UNKNOWN INDICATION
     Route: 048
     Dates: end: 20120701
  8. LASILIX [Suspect]
     Indication: PRODUCT USED FOR UNKNOWN INDICATION
     Route: 048
     Dates: end: 20120701

REACTIONS (1)
  - Eosinophilic myocarditis [Not Recovered/Not Resolved]
